FAERS Safety Report 6754920-3 (Version None)
Quarter: 2010Q2

REPORT INFORMATION
  Report Type: 
  Country: None (occurrence: None)
  Receive Date: 20100603
  Receipt Date: 20100526
  Transmission Date: 20101027
  Serious: Yes (Other)
  Sender: FDA-Public Use
  Company Number: US-B.I. PHARMACEUTICALS,INC./RIDGEFIELD-2010-BP-04993BP

PATIENT
  Age: 45 Year
  Sex: Female
  Weight: 66.55 kg

DRUGS (11)
  1. DULCOLAX [Suspect]
     Indication: COLONOSCOPY
     Dosage: 10 MG
     Route: 048
     Dates: start: 20100404, end: 20100405
  2. HALFLYTELY [Suspect]
     Indication: COLONOSCOPY
     Route: 048
  3. TOPAMAX [Concomitant]
  4. ACEON [Concomitant]
  5. FEXOFENADINE [Concomitant]
  6. PREMARIN [Concomitant]
  7. NEXIUM [Concomitant]
  8. BONIVA [Concomitant]
  9. NASACORT [Concomitant]
  10. CALTRATE [Concomitant]
     Dates: start: 20100301
  11. MULTIPLE VITAMIN [Concomitant]
     Dates: start: 20100301

REACTIONS (6)
  - ABDOMINAL DISTENSION [None]
  - COLITIS ISCHAEMIC [None]
  - FLATULENCE [None]
  - MUSCLE SPASMS [None]
  - PYREXIA [None]
  - RECTAL HAEMORRHAGE [None]
